FAERS Safety Report 18888239 (Version 1)
Quarter: 2021Q1

REPORT INFORMATION
  Report Type: Report from Study
  Country: US (occurrence: US)
  Receive Date: 20210212
  Receipt Date: 20210212
  Transmission Date: 20210420
  Serious: No
  Sender: FDA-Public Use
  Company Number: US-ALLERGAN-2106203US

PATIENT
  Age: 49 Year
  Sex: Female
  Weight: 114.9 kg

DRUGS (7)
  1. NAPROXEN. [Concomitant]
     Active Substance: NAPROXEN
     Indication: ARTHRITIS
     Dosage: 500 MG, PRN
     Route: 048
     Dates: start: 2020
  2. CARIPRAZINE HCL 4.5MG CAP (TBD) [Suspect]
     Active Substance: CARIPRAZINE HYDROCHLORIDE
     Dosage: 3 MG, QD
     Route: 048
     Dates: start: 20200325, end: 20200331
  3. METOPROLOL. [Concomitant]
     Active Substance: METOPROLOL
     Indication: PALPITATIONS
     Dosage: 25 MG, QD
     Route: 048
     Dates: start: 102904
  4. METFORMIN [Concomitant]
     Active Substance: METFORMIN HYDROCHLORIDE
     Indication: TYPE 2 DIABETES MELLITUS
     Dosage: 500 MG, QD
     Route: 048
     Dates: start: 201603
  5. VITAMIN D                          /00107901/ [Concomitant]
     Active Substance: ERGOCALCIFEROL
     Indication: VITAMIN D DEFICIENCY
     Dosage: 5000 IU, QD
     Route: 048
     Dates: start: 201903
  6. CARIPRAZINE HCL 4.5MG CAP (TBD) [Suspect]
     Active Substance: CARIPRAZINE HYDROCHLORIDE
     Indication: SCHIZOPHRENIA
     Dosage: 4.5 MG, QD
     Route: 048
     Dates: start: 20200401, end: 20200624
  7. CARIPRAZINE HCL 4.5MG CAP (TBD) [Suspect]
     Active Substance: CARIPRAZINE HYDROCHLORIDE
     Dosage: 1.5 MG, QD
     Route: 048
     Dates: start: 20200318, end: 20200324

REACTIONS (2)
  - Dyschromatopsia [Not Recovered/Not Resolved]
  - Visual acuity reduced [Not Recovered/Not Resolved]

NARRATIVE: CASE EVENT DATE: 20200626
